FAERS Safety Report 4282843-0 (Version None)
Quarter: 2004Q1

REPORT INFORMATION
  Report Type: 
  Country: None (occurrence: None)
  Receive Date: 20040130
  Receipt Date: 20030604
  Transmission Date: 20041129
  Serious: No
  Sender: FDA-Public Use
  Company Number: US-BRISTOL-MYERS SQUIBB COMPANY-12292660

PATIENT
  Age: 49 Year
  Sex: Female
  Weight: 66 kg

DRUGS (4)
  1. SERZONE [Suspect]
     Indication: DEPRESSION
     Dosage: DOSE INCREASED GRADUALLY UNTIL REACHED 350MG QD; 3/03:MD BEGAN TO REDUCE DOSE;6/4/03:200MG QD DOSE.
     Route: 048
     Dates: start: 20021118
  2. FLOVENT [Concomitant]
     Route: 055
  3. ESTROGEN [Concomitant]
  4. PROGESTERONE [Concomitant]

REACTIONS (6)
  - ANXIETY [None]
  - COORDINATION ABNORMAL [None]
  - DISSOCIATION [None]
  - FEELING ABNORMAL [None]
  - HOT FLUSH [None]
  - PANIC ATTACK [None]
